FAERS Safety Report 5004483-8 (Version None)
Quarter: 2006Q2

REPORT INFORMATION
  Report Type: 
  Country: None (occurrence: None)
  Receive Date: 20060511
  Receipt Date: 20060501
  Transmission Date: 20061013
  Serious: Yes (Death, Hospitalization)
  Sender: FDA-Public Use
  Company Number: 163-21880-06050151

PATIENT
  Age: 78 Year
  Sex: Male

DRUGS (1)
  1. REVLIMID [Suspect]
     Indication: MYELODYSPLASTIC SYNDROME
     Dosage: 5 MG, BID, ORAL
     Route: 048
     Dates: start: 20060206, end: 20060419

REACTIONS (2)
  - PANCYTOPENIA [None]
  - SMALL CELL LUNG CANCER STAGE UNSPECIFIED [None]
